FAERS Safety Report 18393260 (Version 16)
Quarter: 2023Q2

REPORT INFORMATION
  Report Type: Report from Study
  Country: CO (occurrence: CO)
  Receive Date: 20201016
  Receipt Date: 20230623
  Transmission Date: 20230722
  Serious: Yes (Hospitalization, Other)
  Sender: FDA-Public Use
  Company Number: NVSC2020CO278059

PATIENT
  Age: 64 Year
  Sex: Female
  Weight: 72 kg

DRUGS (7)
  1. COSENTYX [Suspect]
     Active Substance: SECUKINUMAB
     Indication: Ankylosing spondylitis
     Dosage: 150 MG, QMO
     Route: 058
     Dates: start: 20200305, end: 20200810
  2. COSENTYX [Suspect]
     Active Substance: SECUKINUMAB
     Dosage: 150 MG, QMO
     Route: 058
  3. COSENTYX [Suspect]
     Active Substance: SECUKINUMAB
     Dosage: 150 MG
     Route: 065
  4. COSENTYX [Suspect]
     Active Substance: SECUKINUMAB
     Dosage: 150 MG, QMO
     Route: 058
  5. COSENTYX [Suspect]
     Active Substance: SECUKINUMAB
     Dosage: 150 MG, QMO
     Route: 058
     Dates: start: 202201
  6. COSENTYX [Suspect]
     Active Substance: SECUKINUMAB
     Dosage: 150 MG, QMO
     Route: 058
  7. COSENTYX [Suspect]
     Active Substance: SECUKINUMAB
     Dosage: 300 MG, QMO
     Route: 058

REACTIONS (31)
  - Ankylosing spondylitis [Unknown]
  - Pain in extremity [Unknown]
  - Movement disorder [Unknown]
  - Spinal pain [Not Recovered/Not Resolved]
  - Back pain [Unknown]
  - Gait inability [Unknown]
  - Pain [Unknown]
  - Arthralgia [Recovering/Resolving]
  - Musculoskeletal discomfort [Unknown]
  - Muscle rigidity [Unknown]
  - Dyspnoea [Unknown]
  - Memory impairment [Not Recovered/Not Resolved]
  - Hair disorder [Unknown]
  - Apnoea [Unknown]
  - Asphyxia [Unknown]
  - Oxygen saturation abnormal [Not Recovered/Not Resolved]
  - Malaise [Unknown]
  - Dizziness [Unknown]
  - Eye swelling [Unknown]
  - Headache [Unknown]
  - Visual impairment [Unknown]
  - Eye inflammation [Unknown]
  - Illness [Unknown]
  - Oropharyngeal pain [Unknown]
  - General physical health deterioration [Unknown]
  - Influenza [Unknown]
  - Nasopharyngitis [Unknown]
  - Insomnia [Not Recovered/Not Resolved]
  - Eye irritation [Unknown]
  - Otorrhoea [Unknown]
  - Cardiac disorder [Unknown]

NARRATIVE: CASE EVENT DATE: 20201008
